FAERS Safety Report 4451851-9 (Version None)
Quarter: 2004Q3

REPORT INFORMATION
  Report Type: 
  Country: None (occurrence: None)
  Receive Date: 20040813
  Receipt Date: 20040513
  Transmission Date: 20050211
  Serious: No
  Sender: FDA-Public Use
  Company Number: S04-USA-03503-01

PATIENT
  Age: 76 Year
  Sex: Female

DRUGS (6)
  1. NAMENDA [Suspect]
     Indication: MEMORY IMPAIRMENT
     Dosage: 10 MG QAM PO
     Route: 048
  2. NAMENDA [Suspect]
     Indication: MEMORY IMPAIRMENT
     Dosage: 5 MG QHS PO
     Route: 048
  3. NAMENDA [Suspect]
     Indication: MEMORY IMPAIRMENT
  4. ARICEPT [Concomitant]
  5. NORVASC [Concomitant]
  6. THYROID TAB [Concomitant]

REACTIONS (1)
  - FATIGUE [None]
